FAERS Safety Report 7090350-5 (Version None)
Quarter: 2010Q4

REPORT INFORMATION
  Report Type: 
  Country: None (occurrence: None)
  Receive Date: 20101109
  Receipt Date: 20101027
  Transmission Date: 20110411
  Serious: Yes (Hospitalization)
  Sender: FDA-Public Use
  Company Number: HU-SOLVAY-00310005249

PATIENT
  Age: 26613 Day
  Sex: Male
  Weight: 72 kg

DRUGS (8)
  1. HUMULIN N [Concomitant]
     Indication: DIABETES MELLITUS
     Dosage: DAILY DOSE: 6 INTERNATIONAL UNIT(S)
     Route: 058
     Dates: start: 20060530
  2. HUMULIN R [Concomitant]
     Indication: DIABETES MELLITUS
     Dosage: DAILY DOSE: 30 INTERNATIONAL UNIT(S)
     Route: 058
     Dates: start: 20060530
  3. KALIUM 1G [Concomitant]
     Indication: NUTRITIONAL SUPPORT
     Dosage: DAILY DOSE: 1 GRAM(S)
     Route: 048
     Dates: start: 20100713
  4. FUROSEMID 40MG [Concomitant]
     Indication: CARDIAC FAILURE
     Dosage: DAILY DOSE: 40 MILLIGRAM(S)
     Route: 048
     Dates: start: 20100713
  5. TORVACARD 40MG [Concomitant]
     Indication: DYSLIPIDAEMIA
     Dosage: DAILY DOSE: 40 MILLIGRAM(S)
     Route: 048
     Dates: start: 20100101
  6. TRITACE HCT 5/25 [Concomitant]
     Indication: HYPERTENSION
     Dosage: DAILY DOSE: 1 DOSAGE FORM
     Route: 048
     Dates: start: 20040101
  7. CREON [Suspect]
     Indication: PANCREATIC INSUFFICIENCY
     Dosage: DAILY DOSE: 9 DOSAGE FORM
     Route: 048
     Dates: start: 20100401
  8. COVERCARD 10/10 [Concomitant]
     Indication: HYPERTENSION
     Dosage: DAILY DOSE: 1 DOSAGE FORM
     Route: 048
     Dates: start: 20090101

REACTIONS (2)
  - CARDIAC FAILURE [None]
  - INGUINAL HERNIA [None]
